FAERS Safety Report 18300702 (Version 3)
Quarter: 2020Q4

REPORT INFORMATION
  Report Type: Spontaneous
  Country: DE (occurrence: DE)
  Receive Date: 20200923
  Receipt Date: 20201126
  Transmission Date: 20210113
  Serious: Yes (Death, Hospitalization)
  Sender: FDA-Public Use
  Company Number: DE-ROCHE-2682849

PATIENT
  Age: 67 Year
  Sex: Male
  Weight: 75 kg

DRUGS (2)
  1. BEVACIZUMAB. [Suspect]
     Active Substance: BEVACIZUMAB
     Indication: HEPATOCELLULAR CARCINOMA
     Route: 042
     Dates: start: 20200806, end: 20200827
  2. ATEZOLIZUMAB. [Suspect]
     Active Substance: ATEZOLIZUMAB
     Indication: HEPATOCELLULAR CARCINOMA
     Route: 041
     Dates: start: 20200806

REACTIONS (10)
  - Delirium [Recovering/Resolving]
  - Duodenal ulcer perforation [Fatal]
  - Coagulopathy [Unknown]
  - Disorientation [Unknown]
  - Shock haemorrhagic [Fatal]
  - Peritonitis [Fatal]
  - Hypothyroidism [Unknown]
  - Hepatic encephalopathy [Recovered/Resolved]
  - Suture related complication [Recovering/Resolving]
  - Tongue biting [Unknown]

NARRATIVE: CASE EVENT DATE: 202009
